FAERS Safety Report 8134313-7 (Version None)
Quarter: 2012Q1

REPORT INFORMATION
  Report Type: 
  Country: None (occurrence: None)
  Receive Date: 20120209
  Receipt Date: 20120127
  Transmission Date: 20120608
  Serious: Yes (Other)
  Sender: FDA-Public Use
  Company Number: JPI-P-019555

PATIENT
  Age: 48 Year
  Sex: Female
  Weight: 58.9676 kg

DRUGS (2)
  1. LORAZEPAM [Concomitant]
  2. XYREM [Suspect]
     Indication: FIBROMYALGIA
     Dosage: ORAL, 9 GM (4.5 GM, 2 IN 1 D), ORAL
     Route: 048
     Dates: start: 20090901

REACTIONS (10)
  - ECONOMIC PROBLEM [None]
  - GASTRIC DISORDER [None]
  - NAUSEA [None]
  - DIZZINESS [None]
  - AUTOIMMUNE THYROIDITIS [None]
  - FEELING JITTERY [None]
  - HYPERHIDROSIS [None]
  - CYSTITIS [None]
  - DEPRESSION [None]
  - DIARRHOEA [None]
